FAERS Safety Report 15405568 (Version 2)
Quarter: 2018Q3

REPORT INFORMATION
  Report Type: Other
  Country: DE (occurrence: DE)
  Receive Date: 20180920
  Receipt Date: 20180926
  Transmission Date: 20181010
  Serious: Yes (Hospitalization, Other)
  Sender: FDA-Public Use
  Company Number: DE-LUPIN PHARMACEUTICALS INC.-2018-06390

PATIENT
  Age: 88 Year
  Sex: Female
  Weight: 80 kg

DRUGS (4)
  1. MEMANTINE. [Suspect]
     Active Substance: MEMANTINE
     Dosage: 15 MG, UNK (DUE TO IMPAIRED KIDNEY FUNCTION, HEART FAILURE HIGH KREATENIN ON DEMAND)
     Route: 048
  2. MEMANTINE. [Suspect]
     Active Substance: MEMANTINE
     Dosage: 20 MG, UNK
     Route: 048
  3. MEMANTINE. [Suspect]
     Active Substance: MEMANTINE
     Indication: COGNITIVE DISORDER
     Dosage: 20 MG, UNK (INCREASED)
     Route: 048
  4. MEMANTINE. [Suspect]
     Active Substance: MEMANTINE
     Indication: DEMENTIA
     Dosage: UNK
     Route: 048

REACTIONS (8)
  - Coordination abnormal [Unknown]
  - Hallucination [Unknown]
  - Somnolence [Unknown]
  - Dementia [Unknown]
  - Condition aggravated [Unknown]
  - Muscle twitching [Unknown]
  - Cystitis noninfective [Unknown]
  - Confusional state [Unknown]

NARRATIVE: CASE EVENT DATE: 20180909
